FAERS Safety Report 6147196-1 (Version None)
Quarter: 2009Q2

REPORT INFORMATION
  Report Type: 
  Country: None (occurrence: None)
  Receive Date: 20090407
  Receipt Date: 20080908
  Transmission Date: 20091009
  Serious: No
  Sender: FDA-Public Use
  Company Number: US-TYCO HEALTHCARE/MALLINCKRODT-T200801468

PATIENT

DRUGS (18)
  1. METHADOSE [Suspect]
     Indication: BACK PAIN
     Dates: start: 20030101
  2. METHADOSE [Suspect]
     Dosage: 40 MG, QID
     Route: 048
     Dates: end: 20070918
  3. METHADOSE [Suspect]
     Dosage: 40 MG, TID
     Route: 048
     Dates: start: 20070919, end: 20080211
  4. METHADOSE [Suspect]
     Dosage: 50 MG, TID
     Route: 048
     Dates: start: 20080212
  5. ACTIQ [Suspect]
     Indication: BACK PAIN
     Dosage: 1200 UG, Q 4 HR
     Route: 002
  6. ACTIQ [Suspect]
     Dosage: 800 UG, Q 4 HR
     Route: 002
     Dates: end: 20060319
  7. ACTIQ [Suspect]
     Dosage: 800 UG, TID
     Route: 002
     Dates: start: 20060320, end: 20060606
  8. ACTIQ [Suspect]
     Dosage: 400 UG, QID
     Route: 002
     Dates: start: 20060607, end: 20060814
  9. ACTIQ [Suspect]
     Dosage: 400 UG, TID
     Route: 002
     Dates: start: 20060815, end: 20061012
  10. ACTIQ [Suspect]
     Dosage: 200 UG, TID
     Route: 002
     Dates: start: 20061013, end: 20061201
  11. ZANAFLEX [Concomitant]
     Dates: end: 20061113
  12. CITALOPRAM HYDROBROMIDE [Concomitant]
     Dates: end: 20070314
  13. BUPROPION HCL [Concomitant]
  14. CLONAZEPAM [Concomitant]
  15. GABITRIL [Concomitant]
     Dates: end: 20070501
  16. TRAZODONE [Concomitant]
  17. AMBIEN CR [Concomitant]
  18. SONATA                             /01454001/ [Concomitant]
     Dosage: UNK, UNK

REACTIONS (4)
  - DRUG DEPENDENCE [None]
  - DRUG TOLERANCE [None]
  - TOOTH DISORDER [None]
  - WITHDRAWAL SYNDROME [None]
